FAERS Safety Report 6809316-2 (Version None)
Quarter: 2010Q2

REPORT INFORMATION
  Report Type: 
  Country: None (occurrence: None)
  Receive Date: 20100630
  Receipt Date: 20100628
  Transmission Date: 20101027
  Serious: Yes (Hospitalization, Other)
  Sender: FDA-Public Use
  Company Number: US-TYCO HEALTHCARE/MALLINCKRODT-T201001457

PATIENT

DRUGS (1)
  1. EXALGO [Suspect]
     Indication: PAIN
     Dosage: 8 MG, QD
     Route: 048
     Dates: start: 20090801, end: 20090801

REACTIONS (4)
  - BRADYCARDIA [None]
  - CONVULSION [None]
  - LOSS OF CONSCIOUSNESS [None]
  - SOMNOLENCE [None]
